FAERS Safety Report 15935835 (Version 3)
Quarter: 2019Q1

REPORT INFORMATION
  Report Type: Report from Study
  Country: CA (occurrence: CA)
  Receive Date: 20190208
  Receipt Date: 20190311
  Transmission Date: 20190417
  Serious: Yes (Life-Threatening, Other)
  Sender: FDA-Public Use
  Company Number: CA-PFIZER INC-2019055723

PATIENT
  Age: 52 Year
  Sex: Female
  Weight: 112 kg

DRUGS (1)
  1. LORLATINIB [Suspect]
     Active Substance: LORLATINIB
     Dosage: 100 MG, DAILY
     Route: 048
     Dates: start: 20190103, end: 20190201

REACTIONS (2)
  - Coronary artery dissection [Recovered/Resolved with Sequelae]
  - Myocardial infarction [Unknown]

NARRATIVE: CASE EVENT DATE: 20190128
